FAERS Safety Report 5450937-X (Version None)
Quarter: 2007Q3

REPORT INFORMATION
  Report Type: 
  Country: None (occurrence: None)
  Receive Date: 20070911
  Receipt Date: 20070902
  Transmission Date: 20080115
  Serious: Yes (Other)
  Sender: FDA-Public Use
  Company Number: 163-21880-07090057

PATIENT
  Age: 76 Year
  Sex: Female

DRUGS (8)
  1. REVLIMID [Suspect]
     Indication: MYELODYSPLASTIC SYNDROME
     Dosage: 5 MG, 1 IN 1 D, ORAL
     Route: 048
     Dates: start: 20070811
  2. FLUORAZEPAM [Concomitant]
  3. VALIUM [Concomitant]
  4. PERCOCET [Concomitant]
  5. NORVASC [Concomitant]
  6. ARANESP [Concomitant]
  7. NEULASTA [Concomitant]
  8. WHOLE BLOOD [Concomitant]

REACTIONS (6)
  - ASTHENIA [None]
  - DECUBITUS ULCER [None]
  - FALL [None]
  - GAIT DISTURBANCE [None]
  - HYPOACUSIS [None]
  - UPPER LIMB FRACTURE [None]
